FAERS Safety Report 9486943 (Version 3)
Quarter: 2014Q2

REPORT INFORMATION
  Report Type: Spontaneous
  Country: US (occurrence: US)
  Receive Date: 20130829
  Receipt Date: 20140528
  Transmission Date: 20141212
  Serious: Yes (Hospitalization)
  Sender: FDA-Public Use
  Company Number: US-BAYER-2013-104121

PATIENT
  Age: 23 Year
  Sex: Female
  Weight: 83.9 kg

DRUGS (2)
  1. MIRENA [Suspect]
     Indication: CONTRACEPTION
     Dosage: 20 MCG/24HR, CONT
     Route: 015
     Dates: start: 20101012, end: 20120305
  2. LEXAPRO [Concomitant]
     Indication: POSTPARTUM DEPRESSION
     Dosage: UNK
     Dates: start: 2010, end: 2011

REACTIONS (12)
  - Uterine perforation [None]
  - Medical device pain [None]
  - Uterine scar [None]
  - Injury [None]
  - Infection [None]
  - Procedural pain [None]
  - Device dislocation [None]
  - Medical device discomfort [None]
  - Pain [None]
  - Anxiety [None]
  - Menorrhagia [None]
  - Device issue [None]
